FAERS Safety Report 9324481 (Version 2)
Quarter: 2013Q4

REPORT INFORMATION
  Report Type: Spontaneous
  Country: US (occurrence: US)
  Receive Date: 20130603
  Receipt Date: 20131115
  Transmission Date: 20140711
  Serious: Yes (Hospitalization)
  Sender: FDA-Public Use
  Company Number: US-B.I. PHARMACEUTICALS,INC./RIDGEFIELD-2013-BI-15148BP

PATIENT
  Age: 84 Year
  Sex: Female
  Weight: 56.7 kg

DRUGS (10)
  1. PRADAXA [Suspect]
     Indication: ANTICOAGULANT THERAPY
     Dosage: 300 MG
     Dates: start: 20101122, end: 20110901
  2. PRADAXA [Suspect]
     Indication: ATRIAL FIBRILLATION
  3. AMIODARONE [Concomitant]
     Dosage: 100 MG
  4. ASA [Concomitant]
     Dosage: 81 MG
  5. NEXIUM [Concomitant]
     Dosage: 40 MG
  6. SENOKOT [Concomitant]
     Route: 048
  7. LEVOTHYROXINE [Concomitant]
     Dosage: 50 MCG
  8. ZOFRAN [Concomitant]
  9. CALCIUM [Concomitant]
  10. VITAMIN D [Concomitant]

REACTIONS (2)
  - Gastrointestinal haemorrhage [Unknown]
  - Haemorrhagic anaemia [Unknown]
